FAERS Safety Report 7885226-7 (Version None)
Quarter: 2011Q4

REPORT INFORMATION
  Report Type: 
  Country: None (occurrence: None)
  Receive Date: 20111102
  Receipt Date: 20111024
  Transmission Date: 20120403
  Serious: Yes (Other)
  Sender: FDA-Public Use
  Company Number: JP-ASTRAZENECA-2011SE60076

PATIENT
  Sex: Female

DRUGS (1)
  1. IRESSA [Suspect]
     Indication: LUNG NEOPLASM MALIGNANT
     Route: 048

REACTIONS (3)
  - DIARRHOEA [None]
  - PYREXIA [None]
  - ENTEROCOLITIS [None]
